FAERS Safety Report 4578075-9 (Version None)
Quarter: 2005Q1

REPORT INFORMATION
  Report Type: 
  Country: None (occurrence: None)
  Receive Date: 20050209
  Receipt Date: 20050125
  Transmission Date: 20050727
  Serious: Yes (Hospitalization)
  Sender: FDA-Public Use
  Company Number: FR_050105702

PATIENT
  Age: 60 Year
  Sex: Female

DRUGS (1)
  1. ZYPREXA [Suspect]
     Indication: DELUSION
     Dosage: 10 MG/1 DAY
     Dates: start: 20041201, end: 20041201

REACTIONS (1)
  - RESPIRATORY FAILURE [None]
